FAERS Safety Report 6225681-1 (Version None)
Quarter: 2009Q2

REPORT INFORMATION
  Report Type: 
  Country: None (occurrence: None)
  Receive Date: 20090612
  Receipt Date: 20090429
  Transmission Date: 20091009
  Serious: No
  Sender: FDA-Public Use
  Company Number: US-ABBOTT-09P-163-0570884-00

PATIENT
  Sex: Male
  Weight: 80.812 kg

DRUGS (2)
  1. HUMIRA [Suspect]
     Indication: CROHN'S DISEASE
     Dates: start: 20070101
  2. HUMIRA [Suspect]
     Indication: SPONDYLITIS

REACTIONS (1)
  - DIPLOPIA [None]
